FAERS Safety Report 10393513 (Version 1)
Quarter: 2014Q3

REPORT INFORMATION
  Report Type: Spontaneous
  Country: GB (occurrence: None)
  Receive Date: 20140815
  Receipt Date: 20140815
  Transmission Date: 20150326
  Serious: Yes (Hospitalization)
  Sender: FDA-Public Use
  Company Number: FK201403289

PATIENT
  Age: 78 Year
  Sex: Female

DRUGS (15)
  1. GLYCERYL TRINITRATE (GLYCERYL TRINITRATE) [Concomitant]
  2. SIMVASTATIN (SIMVASTATIN) [Concomitant]
     Active Substance: SIMVASTATIN
  3. BISOPROLOL (BISOPROLOL) [Concomitant]
     Active Substance: BISOPROLOL
  4. MOVELAT (MOVELAT) [Concomitant]
  5. NICORANDIL (NICORANDIL) [Concomitant]
     Active Substance: NICORANDIL
  6. TRIMETHOPRIM (TRIMETHOPRIM) [Suspect]
     Active Substance: TRIMETHOPRIM
     Indication: URINARY TRACT INFECTION
     Route: 048
     Dates: end: 20140627
  7. FUROSEMIDE (MANUFACTURER UNKNOWN) (FUROSEMIDE) (FUROSEMIDE) [Suspect]
     Active Substance: FUROSEMIDE
     Indication: PRODUCT USED FOR UNKNOWN INDICATION
  8. ASPIRIN (ACETYLSALICYLIC ACID) [Concomitant]
     Active Substance: ASPIRIN
  9. PARACETAMOL (PARACETAMOL) [Concomitant]
     Active Substance: ACETAMINOPHEN
  10. CEPHALEXIN MONOHYDRATE. [Suspect]
     Active Substance: CEPHALEXIN MONOHYDRATE
     Indication: URINARY TRACT INFECTION
     Route: 048
     Dates: start: 20140616
  11. FOSTAIR (BEKFORM) [Concomitant]
  12. NYSTATIN (NYSTATIN) [Concomitant]
     Active Substance: NYSTATIN
  13. ZOPICLONE (ZOPICLONE) [Concomitant]
     Active Substance: ZOPICLONE
  14. CITALOPRAM (CITALOPRAM) [Concomitant]
     Active Substance: CITALOPRAM HYDROBROMIDE
  15. LANSOPRAZOLE (LANSOPRAZOLE) [Concomitant]
     Active Substance: LANSOPRAZOLE

REACTIONS (4)
  - Prescribed underdose [None]
  - Medication error [None]
  - Renal failure acute [None]
  - Drug ineffective [None]
